FAERS Safety Report 4710724-4 (Version None)
Quarter: 2005Q3

REPORT INFORMATION
  Report Type: 
  Country: None (occurrence: None)
  Receive Date: 20050711
  Receipt Date: 20050516
  Transmission Date: 20060218
  Serious: Yes (Hospitalization)
  Sender: FDA-Public Use
  Company Number: US-BRISTOL-MYERS SQUIBB COMPANY-12969838

PATIENT
  Age: 47 Year
  Sex: Female

DRUGS (28)
  1. CETUXIMAB [Suspect]
     Indication: COLORECTAL CANCER METASTATIC
     Dosage: 1ST CETUXIMAB INFUSION ADMINISTERED ON 07-APR-2005.
     Route: 042
     Dates: start: 20050407, end: 20050407
  2. IRINOTECAN [Suspect]
     Indication: COLORECTAL CANCER METASTATIC
     Dosage: 1ST IRINOTECAN INFUSION ADMINISTERED ON 07-APR-2005.
     Route: 042
     Dates: start: 20050407, end: 20050407
  3. LIQUIBID-D [Concomitant]
     Route: 048
     Dates: start: 20050201
  4. ALBUTEROL [Concomitant]
     Route: 055
     Dates: start: 20050228
  5. LORATADINE [Concomitant]
     Route: 048
     Dates: start: 20050201
  6. PREDNISONE TAB [Concomitant]
     Route: 048
     Dates: start: 20050317, end: 20050330
  7. AZMACORT [Concomitant]
     Route: 048
     Dates: start: 20050201
  8. PROTONIX [Concomitant]
     Dates: start: 20030415
  9. TEMAZEPAM [Concomitant]
     Dates: start: 20030401
  10. AMITRIPTYLINE HCL [Concomitant]
     Dates: start: 20050101
  11. VITAMIN B6 [Concomitant]
     Dates: start: 20050201
  12. ZOFRAN [Concomitant]
  13. LOPERAMIDE [Concomitant]
     Dates: start: 20030101
  14. COMPAZINE [Concomitant]
     Dates: start: 20030415
  15. HYOSCYAMINE [Concomitant]
     Dates: start: 20030429
  16. ATIVAN [Concomitant]
     Dates: start: 20030408
  17. LORTAB-7 [Concomitant]
     Dates: start: 20040730
  18. MIRACLE MOUTHWASH [Concomitant]
     Dates: start: 20040930
  19. HYDROXYZINE HCL [Concomitant]
     Dates: start: 20040901
  20. LIQUIBID [Concomitant]
     Dates: start: 20050201
  21. AVINZA [Concomitant]
     Dates: start: 20040730
  22. MOTRIN [Concomitant]
     Dates: start: 20050317
  23. ADVIL [Concomitant]
     Dates: start: 20030101
  24. DEMEROL [Concomitant]
     Dates: start: 20050407
  25. ALOXI [Concomitant]
  26. APAP TAB [Concomitant]
     Dates: start: 20050317
  27. PREDNISONE TAB [Concomitant]
     Dates: start: 20050330
  28. HUMULIN R [Concomitant]
     Route: 048
     Dates: start: 20050430

REACTIONS (3)
  - MOUTH ULCERATION [None]
  - PHARYNGITIS [None]
  - RASH [None]
